FAERS Safety Report 6585306-2 (Version None)
Quarter: 2010Q1

REPORT INFORMATION
  Report Type: 
  Country: None (occurrence: None)
  Receive Date: 20100217
  Receipt Date: 20100210
  Transmission Date: 20100710
  Serious: Yes (Death)
  Sender: FDA-Public Use
  Company Number: US-GILEAD-2010-0026989

PATIENT
  Sex: Male
  Weight: 83.082 kg

DRUGS (8)
  1. LETAIRIS [Suspect]
     Indication: PULMONARY ARTERIAL HYPERTENSION
     Route: 048
     Dates: start: 20081112
  2. FUROSEMIDE [Concomitant]
  3. METOPROLOL TARTRATE [Concomitant]
  4. WARFARIN SODIUM [Concomitant]
  5. OXYGEN [Concomitant]
  6. NYSTATIN [Concomitant]
  7. METHIMAZOLE [Concomitant]
  8. MULTI-VITAMINS [Concomitant]

REACTIONS (1)
  - DEATH [None]
